FAERS Safety Report 18540534 (Version 4)
Quarter: 2021Q3

REPORT INFORMATION
  Report Type: Spontaneous
  Country: FR (occurrence: FR)
  Receive Date: 20201124
  Receipt Date: 20210707
  Transmission Date: 20211014
  Serious: Yes (Other)
  Sender: FDA-Public Use
  Company Number: NVSC2020FR313253

PATIENT
  Sex: Male

DRUGS (5)
  1. ADALIMUMAB [Suspect]
     Active Substance: ADALIMUMAB
     Indication: CHRONIC GRANULOMATOUS DISEASE
     Dosage: 24 MG/M2, BIW (Q2W)
     Route: 058
  2. COTRIMOXAZOLE [Concomitant]
     Active Substance: SULFAMETHOXAZOLE\TRIMETHOPRIM
     Indication: INFECTION PROPHYLAXIS
     Dosage: UNK
     Route: 065
  3. REMICADE [Suspect]
     Active Substance: INFLIXIMAB
     Indication: CHRONIC GRANULOMATOUS DISEASE
     Dosage: 5 OR 10 MG/KG/INFUSION, USUALLY AT 0,2,AND 6 WEEKS, THEN EVERY 4 TO 8 WEEKS
     Route: 042
  4. AZATHIOPRINE. [Suspect]
     Active Substance: AZATHIOPRINE
     Indication: IMMUNOSUPPRESSANT DRUG THERAPY
  5. AZATHIOPRINE. [Suspect]
     Active Substance: AZATHIOPRINE
     Indication: CHRONIC GRANULOMATOUS DISEASE
     Dosage: UNK
     Route: 065

REACTIONS (3)
  - Pulmonary mucormycosis [Unknown]
  - Therapeutic product effect incomplete [Unknown]
  - Off label use [Unknown]
